FAERS Safety Report 21467236 (Version 1)
Quarter: 2022Q4

REPORT INFORMATION
  Report Type: Report from Study
  Country: US (occurrence: None)
  Receive Date: 20221017
  Receipt Date: 20221017
  Transmission Date: 20230112
  Serious: Yes (Other)
  Sender: FDA-Public Use
  Company Number: 2022A343448

PATIENT
  Sex: Female

DRUGS (1)
  1. CALQUENCE [Suspect]
     Active Substance: ACALABRUTINIB
     Indication: Chronic lymphocytic leukaemia
     Route: 048

REACTIONS (13)
  - Hypersensitivity [Unknown]
  - Headache [Unknown]
  - Platelet count abnormal [Unknown]
  - White blood cell count abnormal [Unknown]
  - Ageusia [Unknown]
  - Oedema peripheral [Unknown]
  - Blood pressure decreased [Unknown]
  - Muscle spasms [Unknown]
  - Contusion [Unknown]
  - Bone pain [Unknown]
  - Pruritus [Unknown]
  - Skin papilloma [Unknown]
  - Product dose omission issue [Unknown]
